FAERS Safety Report 8758220 (Version 1)
Quarter: 2012Q4

REPORT INFORMATION
  Report Type: 
  Country: GB (occurrence: GB)
  Receive Date: 20120829
  Receipt Date: 20120829
  Transmission Date: 20130627
  Serious: Yes (Hospitalization)
  Sender: FDA-Public Use
  Company Number: PHHY2010GB094674

PATIENT

DRUGS (1)
  1. CICLOSPORIN [Suspect]
     Dosage: 150 mg, BID

REACTIONS (3)
  - Pharyngeal haemorrhage [Recovered/Resolved]
  - Helicobacter infection [Recovered/Resolved]
  - Abdominal pain [Recovered/Resolved]
